FAERS Safety Report 7163647-8 (Version None)
Quarter: 2010Q4

REPORT INFORMATION
  Report Type: 
  Country: None (occurrence: None)
  Receive Date: 20101215
  Receipt Date: 20100521
  Transmission Date: 20110411
  Serious: Yes (Death, Other)
  Sender: FDA-Public Use
  Company Number: DE-PFIZER INC-2010058918

PATIENT
  Age: 47 Year
  Sex: Male

DRUGS (3)
  1. LYRICA [Suspect]
     Dosage: 25 MG, UNK
     Route: 048
     Dates: start: 20100501, end: 20100501
  2. LYRICA [Suspect]
     Dosage: 50 MG, UNK
     Route: 048
     Dates: start: 20100501, end: 20100501
  3. LYRICA [Suspect]
     Dosage: 75 MG, 2X/DAY
     Route: 048
     Dates: start: 20100501

REACTIONS (4)
  - DEATH [None]
  - GAIT DISTURBANCE [None]
  - HYPERSENSITIVITY [None]
  - LOSS OF CONSCIOUSNESS [None]
